FAERS Safety Report 10014448 (Version 2)
Quarter: 2014Q2

REPORT INFORMATION
  Report Type: Spontaneous
  Country: US (occurrence: US)
  Receive Date: 20140317
  Receipt Date: 20140424
  Transmission Date: 20141212
  Serious: Yes (Other)
  Sender: FDA-Public Use
  Company Number: US-BAYER-2014-036435

PATIENT
  Age: 23 Year
  Sex: Female

DRUGS (3)
  1. BEYAZ [Suspect]
     Indication: CONTRACEPTION
     Dosage: 1 DF, QD
     Dates: start: 201401
  2. BACTRIM [Interacting]
     Indication: NASOPHARYNGITIS
     Dosage: UNK
     Dates: start: 20140302
  3. BACTRIM [Interacting]
     Indication: INFLUENZA

REACTIONS (3)
  - Influenza [None]
  - Nasopharyngitis [Recovered/Resolved]
  - Inhibitory drug interaction [None]
